FAERS Safety Report 4334776-9 (Version None)
Quarter: 2004Q2

REPORT INFORMATION
  Report Type: 
  Country: None (occurrence: None)
  Receive Date: 20040407
  Receipt Date: 20040401
  Transmission Date: 20050107
  Serious: Yes (Other)
  Sender: FDA-Public Use
  Company Number: CHNY2004BR00539

PATIENT
  Age: 3 Year
  Sex: Male
  Weight: 21 kg

DRUGS (2)
  1. AGASTEN (NCH) (CLEMASTINE HYDROGEN FUMARATE) SYRUP [Suspect]
     Indication: HYPERSENSITIVITY
     Dosage: 2 ML, Q12H, ORAL
     Route: 048
     Dates: start: 20040327
  2. CEPHALEXIN [Concomitant]

REACTIONS (2)
  - DRUG INEFFECTIVE [None]
  - HAEMATOCHEZIA [None]
